FAERS Safety Report 8491936-3 (Version None)
Quarter: 2012Q3

REPORT INFORMATION
  Report Type: 
  Country: None (occurrence: None)
  Receive Date: 20120706
  Receipt Date: 20120410
  Transmission Date: 20120928
  Serious: No
  Sender: FDA-Public Use
  Company Number: US-GLAXOSMITHKLINE-A0974395A

PATIENT
  Age: 43 Year
  Sex: Female

DRUGS (2)
  1. FLOVENT [Suspect]
     Indication: ASTHMA
     Dosage: 1PUFF TWICE PER DAY
     Route: 055
     Dates: start: 20120101
  2. VENTOLIN [Concomitant]

REACTIONS (4)
  - ARTHRALGIA [None]
  - WEIGHT INCREASED [None]
  - MYALGIA [None]
  - BACK PAIN [None]
